FAERS Safety Report 7250709-X (Version None)
Quarter: 2011Q1

REPORT INFORMATION
  Report Type: 
  Country: None (occurrence: None)
  Receive Date: 20110110
  Receipt Date: 20110110
  Transmission Date: 20110831
  Serious: Yes (Other)
  Sender: FDA-Public Use
  Company Number: None

PATIENT
  Age: 47 Year
  Sex: Female

DRUGS (2)
  1. ALCOHOL SWABS CARE ONE [Suspect]
     Indication: DIABETES MELLITUS
     Dates: start: 20101115, end: 20101215
  2. ALCOHOL SWABS CARE ONE [Suspect]
     Indication: THERAPEUTIC SKIN CARE TOPICAL
     Dates: start: 20101115, end: 20101215

REACTIONS (1)
  - SKIN INFECTION [None]
